FAERS Safety Report 9384457 (Version 1)
Quarter: 2013Q3

REPORT INFORMATION
  Report Type: Spontaneous
  Country: US (occurrence: US)
  Receive Date: 20130705
  Receipt Date: 20130705
  Transmission Date: 20140515
  Serious: No
  Sender: FDA-Public Use
  Company Number: US-009507513-1307USA002575

PATIENT
  Sex: Female

DRUGS (1)
  1. NEXPLANON [Suspect]
     Indication: CONTRACEPTION
     Dosage: 68 MG/ONE ROD EVERY THREE YEARS
     Route: 059
     Dates: start: 20121002

REACTIONS (1)
  - Menstruation irregular [Recovered/Resolved]
